FAERS Safety Report 10644408 (Version 2)
Quarter: 2015Q1

REPORT INFORMATION
  Report Type: Spontaneous
  Country: JP (occurrence: JP)
  Receive Date: 20141210
  Receipt Date: 20150217
  Transmission Date: 20150720
  Serious: Yes (Other)
  Sender: FDA-Public Use
  Company Number: JP-GLAXOSMITHKLINE-JP2014GSK031784

PATIENT
  Age: 46 Year
  Sex: Male
  Weight: 65 kg

DRUGS (1)
  1. OMEGA-3-ACID ETHYL ESTERS. [Suspect]
     Active Substance: OMEGA-3-ACID ETHYL ESTERS
     Indication: HYPERLIPIDAEMIA
     Dosage: 2000 MG, QD
     Route: 048
     Dates: start: 20140825, end: 20141117

REACTIONS (3)
  - Liver function test abnormal [Unknown]
  - Drug ineffective [Recovered/Resolved]
  - Blood triglycerides increased [Recovered/Resolved]

NARRATIVE: CASE EVENT DATE: 20141117
